FAERS Safety Report 8517163-9 (Version None)
Quarter: 2012Q2

REPORT INFORMATION
  Report Type: 
  Country: None (occurrence: None)
  Receive Date: 20120406
  Receipt Date: 20101020
  Transmission Date: 20120825
  Serious: Yes (Other)
  Sender: FDA-Public Use
  Company Number: PHHY2010US71091

PATIENT

DRUGS (1)
  1. TASIGNA [Suspect]

REACTIONS (3)
  - CHEST PAIN [None]
  - MYOCARDIAL ISCHAEMIA [None]
  - EJECTION FRACTION DECREASED [None]
